FAERS Safety Report 4974314-0 (Version None)
Quarter: 2006Q2

REPORT INFORMATION
  Report Type: 
  Country: None (occurrence: None)
  Receive Date: 20060417
  Receipt Date: 20050922
  Transmission Date: 20061013
  Serious: Yes (Hospitalization, Disabling)
  Sender: FDA-Public Use
  Company Number: US-MERCK-0509USA03744

PATIENT
  Age: 54 Year
  Sex: Female
  Weight: 74 kg

DRUGS (2)
  1. VIOXX [Suspect]
     Indication: PAIN MANAGEMENT
     Route: 048
     Dates: start: 20000608, end: 20010130
  2. ASPIRIN [Concomitant]
     Route: 065

REACTIONS (3)
  - ISCHAEMIC STROKE [None]
  - LIMB INJURY [None]
  - PAIN IN EXTREMITY [None]
